FAERS Safety Report 10572937 (Version 1)
Quarter: 2014Q4

REPORT INFORMATION
  Report Type: Spontaneous
  Country: US (occurrence: None)
  Receive Date: 20141107
  Receipt Date: 20141107
  Transmission Date: 20150529
  Serious: No
  Sender: FDA-Public Use
  Company Number: None

PATIENT
  Age: 52 Year
  Sex: Female
  Weight: 103.65 kg

DRUGS (1)
  1. INTRON A [Suspect]
     Active Substance: INTERFERON ALFA-2B
     Dosage: 463 MU DOSE HELD FOR 9/27/2011 THEN DOSE REDUCED TO 19.0 MU AND TREATMENT CONTINUED
     Dates: end: 20110926

REACTIONS (3)
  - Sleep disorder [None]
  - Neck pain [None]
  - Activities of daily living impaired [None]

NARRATIVE: CASE EVENT DATE: 20110926
